FAERS Safety Report 20050901 (Version 2)
Quarter: 2022Q1

REPORT INFORMATION
  Report Type: Spontaneous
  Country: NZ (occurrence: NZ)
  Receive Date: 20211110
  Receipt Date: 20220121
  Transmission Date: 20220423
  Serious: Yes (Other)
  Sender: FDA-Public Use
  Company Number: NZ-SA-SAC20211102001396

PATIENT
  Age: 44 Year
  Sex: Male

DRUGS (13)
  1. DUPILUMAB [Suspect]
     Active Substance: DUPILUMAB
     Dosage: UNK
     Dates: start: 2015
  2. CYCLOSPORINE [Suspect]
     Active Substance: CYCLOSPORINE
     Indication: Skin disorder
  3. SERTRALINE [Concomitant]
     Active Substance: SERTRALINE HYDROCHLORIDE
     Indication: Depression
     Dosage: 300 MG
  4. CYCLOSPORINE [Concomitant]
     Active Substance: CYCLOSPORINE
     Dosage: 200 MG
  5. OMEPRAZOLE [Concomitant]
     Active Substance: OMEPRAZOLE
     Dosage: 20 MG
  6. FELODIPINE [Concomitant]
     Active Substance: FELODIPINE
     Dosage: 5 MG ER
  7. ACCURETIC [Concomitant]
     Active Substance: HYDROCHLOROTHIAZIDE\QUINAPRIL HYDROCHLORIDE
     Dosage: 10 MG
  8. ACCURETIC [Concomitant]
     Active Substance: HYDROCHLOROTHIAZIDE\QUINAPRIL HYDROCHLORIDE
     Dosage: 12.5 MG
  9. QUETIAPINE [Concomitant]
     Active Substance: QUETIAPINE
     Dosage: 50 MG
  10. ATORVASTATIN [Concomitant]
     Active Substance: ATORVASTATIN
     Dosage: 10 MG
  11. CEPHALEXIN [Concomitant]
     Active Substance: CEPHALEXIN
     Dosage: 500 MG
  12. LORATADINE [Concomitant]
     Active Substance: LORATADINE
     Dosage: 20 MG
  13. CETIRIZINE [Concomitant]
     Active Substance: CETIRIZINE HYDROCHLORIDE
     Dosage: 25 MG

REACTIONS (10)
  - Blindness transient [Unknown]
  - Corneal disorder [Recovered/Resolved]
  - Eye infection [Recovered/Resolved]
  - Visual impairment [Unknown]
  - Urticaria [Unknown]
  - Pruritus [Unknown]
  - Skin lesion [Unknown]
  - Eczema [Unknown]
  - Skin disorder [Unknown]
  - Adverse drug reaction [Unknown]
